FAERS Safety Report 7015679-8 (Version None)
Quarter: 2010Q3

REPORT INFORMATION
  Report Type: 
  Country: None (occurrence: None)
  Receive Date: 20100927
  Receipt Date: 20091001
  Transmission Date: 20110219
  Serious: No
  Sender: FDA-Public Use
  Company Number: US-ASTRAZENECA-2009SE17252

PATIENT
  Sex: Female
  Weight: 56.7 kg

DRUGS (1)
  1. ARIMIDEX [Suspect]
     Dosage: EVERY OTHER DAY
     Route: 048
     Dates: start: 20090501

REACTIONS (2)
  - BREAST TENDERNESS [None]
  - UNDERDOSE [None]
